FAERS Safety Report 4574677-4 (Version None)
Quarter: 2005Q1

REPORT INFORMATION
  Report Type: 
  Country: None (occurrence: None)
  Receive Date: 20050208
  Receipt Date: 20040629
  Transmission Date: 20050727
  Serious: No
  Sender: FDA-Public Use
  Company Number: 04-175

PATIENT
  Age: 82 Year
  Sex: Female

DRUGS (2)
  1. PAROXETINE HCL [Suspect]
     Dosage: 10MG PER DAY
     Route: 048
     Dates: start: 20040101, end: 20040629
  2. COUMADIN [Concomitant]

REACTIONS (4)
  - DIZZINESS [None]
  - FACE INJURY [None]
  - FALL [None]
  - NAUSEA [None]
